FAERS Safety Report 5005276-8 (Version None)
Quarter: 2006Q2

REPORT INFORMATION
  Report Type: 
  Country: None (occurrence: None)
  Receive Date: 20060518
  Receipt Date: 20060515
  Transmission Date: 20061013
  Serious: Yes (Other)
  Sender: FDA-Public Use
  Company Number: CA-GLAXOSMITHKLINE-A0605920A

PATIENT
  Age: 52 Year
  Sex: Female

DRUGS (3)
  1. MALARONE [Suspect]
     Indication: DRUG USE FOR UNKNOWN INDICATION
     Route: 048
  2. FOSAMAX [Concomitant]
  3. PAXIL [Concomitant]
     Route: 048

REACTIONS (6)
  - ARTHRALGIA [None]
  - DIARRHOEA [None]
  - OEDEMA PERIPHERAL [None]
  - PAIN [None]
  - RASH [None]
  - RED BLOOD CELL SEDIMENTATION RATE INCREASED [None]
